FAERS Safety Report 6539205-2 (Version None)
Quarter: 2010Q1

REPORT INFORMATION
  Report Type: 
  Country: None (occurrence: None)
  Receive Date: 20100115
  Receipt Date: 20100108
  Transmission Date: 20100710
  Serious: Yes (Other)
  Sender: FDA-Public Use
  Company Number: GB-TEVA-038873

PATIENT
  Sex: Male

DRUGS (4)
  1. NALTREXONE HYDROCHLORIDE [Suspect]
  2. MIRTAZAPINE [Interacting]
  3. METHADONE [Interacting]
     Dosage: UNK, UNK
     Route: 048
     Dates: start: 20081004
  4. ALCOHOL [Interacting]

REACTIONS (9)
  - ABDOMINAL PAIN UPPER [None]
  - DIARRHOEA [None]
  - DRUG INTERACTION [None]
  - DYSPNOEA [None]
  - EPILEPSY [None]
  - MUSCLE TWITCHING [None]
  - PAIN IN EXTREMITY [None]
  - PUPIL FIXED [None]
  - VOMITING PROJECTILE [None]
